FAERS Safety Report 7922022-6 (Version None)
Quarter: 2011Q4

REPORT INFORMATION
  Report Type: 
  Country: None (occurrence: None)
  Receive Date: 20111117
  Receipt Date: 20111110
  Transmission Date: 20120403
  Serious: Yes (Hospitalization)
  Sender: FDA-Public Use
  Company Number: US-ASTRAZENECA-2011SE68135

PATIENT
  Age: 92 Year
  Sex: Female
  Weight: 59.4 kg

DRUGS (4)
  1. SIMVASTATIN [Concomitant]
     Indication: HYPERLIPIDAEMIA
     Dates: start: 19890101
  2. ATENOLOL [Suspect]
     Route: 048
  3. ATENOLOL [Suspect]
     Indication: HYPERTENSION
     Route: 048
     Dates: start: 19890101, end: 20111014
  4. BAPINEUZUMAB [Suspect]
     Indication: DEMENTIA ALZHEIMER'S TYPE
     Route: 058
     Dates: start: 20090908

REACTIONS (1)
  - ASTHENIA [None]
